FAERS Safety Report 9762643 (Version 1)
Quarter: 2013Q4

REPORT INFORMATION
  Report Type: Spontaneous
  Country: GB (occurrence: None)
  Receive Date: 20131213
  Receipt Date: 20131213
  Transmission Date: 20140711
  Serious: Yes (Disabling, Other)
  Sender: FDA-Public Use
  Company Number: AUR-APL-2013-10302

PATIENT
  Age: 54 Year
  Sex: Female
  Weight: 70 kg

DRUGS (3)
  1. MONTELUKAST [Suspect]
     Indication: URTICARIA
     Route: 048
     Dates: start: 20130806, end: 20131001
  2. DESLORATADINE (DESLORATADINE) [Concomitant]
  3. RUPATADINE (RUPATADINE) [Concomitant]

REACTIONS (2)
  - Abnormal dreams [None]
  - Nightmare [None]
